FAERS Safety Report 9512957 (Version 3)
Quarter: 2013Q3

REPORT INFORMATION
  Report Type: Spontaneous
  Country: JP (occurrence: JP)
  Receive Date: 20130910
  Receipt Date: 20130927
  Transmission Date: 20140515
  Serious: Yes (Hospitalization)
  Sender: FDA-Public Use
  Company Number: JP-JNJFOC-20130812505

PATIENT
  Age: 55 Year
  Sex: Female

DRUGS (9)
  1. RISPERDAL [Suspect]
     Indication: PRODUCT USED FOR UNKNOWN INDICATION
     Route: 048
  2. RISPERDAL [Suspect]
     Indication: PRODUCT USED FOR UNKNOWN INDICATION
     Route: 048
     Dates: start: 201305, end: 201308
  3. RISPERDAL [Suspect]
     Indication: PSYCHIATRIC SYMPTOM
     Route: 048
  4. DORAL [Concomitant]
     Route: 048
  5. ROHYPNOL [Concomitant]
     Route: 048
  6. NITRAZEPAM [Concomitant]
     Route: 048
  7. SERENACE [Concomitant]
     Route: 048
  8. AKINETON [Concomitant]
     Route: 048
  9. GASMOTIN [Concomitant]
     Route: 048

REACTIONS (3)
  - Colon cancer [Unknown]
  - Alopecia [Recovering/Resolving]
  - Inappropriate schedule of drug administration [Unknown]
